FAERS Safety Report 8928714 (Version 1)
Quarter: 2012Q4

REPORT INFORMATION
  Report Type: 
  Country: US (occurrence: US)
  Receive Date: 20121128
  Receipt Date: 20121128
  Transmission Date: 20130627
  Serious: No
  Sender: FDA-Public Use
  Company Number: US-PFIZER INC-2012296609

PATIENT
  Age: 70 Year
  Sex: Female
  Weight: 67.57 kg

DRUGS (6)
  1. ADVIL PM [Suspect]
     Indication: PAIN RELIEF
     Dosage: UNK, 1x/day
     Route: 048
     Dates: start: 20121123
  2. ADVIL PM [Suspect]
     Indication: SLEEPLESSNESS
  3. SYNTHROID [Concomitant]
     Dosage: UNK, 1x/day
  4. SERTRALINE [Concomitant]
     Dosage: 100 mg, UNK
  5. OXYBUTYNIN LR [Concomitant]
     Dosage: 15 mg, UNK
  6. LEVOTHYROXINE [Concomitant]
     Dosage: 125 ug, UNK

REACTIONS (3)
  - Drug ineffective [Unknown]
  - Expired drug administered [Unknown]
  - Restless legs syndrome [Unknown]
